FAERS Safety Report 5407531-6 (Version None)
Quarter: 2007Q3

REPORT INFORMATION
  Report Type: 
  Country: None (occurrence: None)
  Receive Date: 20070807
  Receipt Date: 20070726
  Transmission Date: 20080115
  Serious: Yes (Other)
  Sender: FDA-Public Use
  Company Number: DE-PFIZER INC-2007063360

PATIENT
  Age: 68 Year
  Sex: Male

DRUGS (3)
  1. ATORVASTATIN CALCIUM [Suspect]
     Route: 048
  2. METOPROLOL SUCCINATE [Concomitant]
  3. ASPIRIN [Concomitant]

REACTIONS (1)
  - PULMONARY FIBROSIS [None]
